FAERS Safety Report 8008569-5 (Version None)
Quarter: 2011Q4

REPORT INFORMATION
  Report Type: 
  Country: None (occurrence: None)
  Receive Date: 20111227
  Receipt Date: 20111213
  Transmission Date: 20120403
  Serious: Yes (Hospitalization)
  Sender: FDA-Public Use
  Company Number: AR-ROCHE-1017842

PATIENT
  Sex: Female
  Weight: 3.6 kg

DRUGS (10)
  1. DICLOFENAC [Suspect]
     Indication: RHEUMATOID ARTHRITIS
     Route: 064
     Dates: start: 20090824, end: 20110310
  2. FOLIC ACID [Concomitant]
     Route: 064
  3. ACTEMRA [Suspect]
     Indication: RHEUMATOID ARTHRITIS
     Route: 064
     Dates: start: 20060928, end: 20110310
  4. ACTEMRA [Suspect]
     Dosage: PATIENT WAS PREVIOUSLY ENROLLED IN WA17822
     Route: 064
  5. PREDNISONE [Concomitant]
  6. PREDNISONE [Concomitant]
     Route: 064
  7. PREDNISONE [Concomitant]
  8. SULFASALAZINE [Suspect]
     Indication: RHEUMATOID ARTHRITIS
     Route: 064
     Dates: start: 20110117, end: 20110310
  9. KETOROLAC TROMETHAMINE [Concomitant]
     Route: 064
     Dates: start: 20100813, end: 20100813
  10. METHOTREXATE [Suspect]
     Indication: RHEUMATOID ARTHRITIS
     Route: 064
     Dates: start: 20090824, end: 20110310

REACTIONS (2)
  - JAUNDICE NEONATAL [None]
  - MATERNAL EXPOSURE TIMING UNSPECIFIED [None]
